FAERS Safety Report 16858174 (Version 2)
Quarter: 2020Q3

REPORT INFORMATION
  Report Type: Spontaneous
  Country: US (occurrence: US)
  Receive Date: 20190926
  Receipt Date: 20200827
  Transmission Date: 20201102
  Serious: Yes (Hospitalization, Other)
  Sender: FDA-Public Use
  Company Number: US-GILEAD-2019-0429386

PATIENT
  Age: 22 Year
  Sex: Female
  Weight: 58.96 kg

DRUGS (31)
  1. NORVIR [Concomitant]
     Active Substance: RITONAVIR
  2. HYDROXYZINE [Concomitant]
     Active Substance: HYDROXYZINE HYDROCHLORIDE
  3. METOPROLOL. [Concomitant]
     Active Substance: METOPROLOL
  4. ZITHROMAX [Concomitant]
     Active Substance: AZITHROMYCIN DIHYDRATE
  5. EPZICOM [Concomitant]
     Active Substance: ABACAVIR SULFATE\LAMIVUDINE
  6. RETROVIR [Concomitant]
     Active Substance: ZIDOVUDINE
  7. FAMOTIDINE. [Concomitant]
     Active Substance: FAMOTIDINE
  8. ONDANSETRON [Concomitant]
     Active Substance: ONDANSETRON
  9. VIRACEPT [Concomitant]
     Active Substance: NELFINAVIR MESYLATE
  10. FUROSEMIDE. [Concomitant]
     Active Substance: FUROSEMIDE
  11. PREDNISONE. [Concomitant]
     Active Substance: PREDNISONE
  12. ISENTRESS [Concomitant]
     Active Substance: RALTEGRAVIR POTASSIUM
  13. EPIVIR [Concomitant]
     Active Substance: LAMIVUDINE
  14. PREZISTA [Concomitant]
     Active Substance: DARUNAVIR ETHANOLATE
  15. VIRAMUNE [Concomitant]
     Active Substance: NEVIRAPINE
  16. ATRIPLA [Suspect]
     Active Substance: EFAVIRENZ\EMTRICITABINE\TENOFOVIR DISOPROXIL FUMARATE
     Indication: HIV INFECTION
     Dosage: UNK
     Route: 065
     Dates: end: 2018
  17. RENVELA [Concomitant]
     Active Substance: SEVELAMER CARBONATE
  18. ZERIT [Concomitant]
     Active Substance: STAVUDINE
  19. AZITHROMYCIN ANHYDROUS. [Concomitant]
     Active Substance: AZITHROMYCIN ANHYDROUS
  20. GEMFIBROZIL. [Concomitant]
     Active Substance: GEMFIBROZIL
  21. LISINOPRIL. [Concomitant]
     Active Substance: LISINOPRIL
  22. COZAAR [Concomitant]
     Active Substance: LOSARTAN POTASSIUM
  23. TRUVADA [Suspect]
     Active Substance: EMTRICITABINE\TENOFOVIR DISOPROXIL FUMARATE
     Indication: HIV INFECTION
     Dosage: UNK
     Route: 048
     Dates: start: 2004, end: 20140522
  24. TRIZIVIR [Concomitant]
     Active Substance: ABACAVIR SULFATE\LAMIVUDINE\ZIDOVUDINE
  25. CEFDINIR. [Concomitant]
     Active Substance: CEFDINIR
  26. PRINIVIL [Concomitant]
     Active Substance: LISINOPRIL
  27. SENSIPAR [Concomitant]
     Active Substance: CINACALCET HYDROCHLORIDE
  28. KALETRA [Concomitant]
     Active Substance: LOPINAVIR\RITONAVIR
  29. LEXIVA [Concomitant]
     Active Substance: FOSAMPRENAVIR CALCIUM
  30. DIOVAN [Concomitant]
     Active Substance: VALSARTAN
  31. VANCENASE [Concomitant]
     Active Substance: BECLOMETHASONE DIPROPIONATE

REACTIONS (11)
  - Renal disorder [Unknown]
  - Bone density decreased [Unknown]
  - Pain [Not Recovered/Not Resolved]
  - Renal failure [Not Recovered/Not Resolved]
  - Anxiety [Not Recovered/Not Resolved]
  - Economic problem [Not Recovered/Not Resolved]
  - Quality of life decreased [Not Recovered/Not Resolved]
  - Anhedonia [Not Recovered/Not Resolved]
  - Loss of personal independence in daily activities [Not Recovered/Not Resolved]
  - Emotional distress [Not Recovered/Not Resolved]
  - Decreased activity [Not Recovered/Not Resolved]

NARRATIVE: CASE EVENT DATE: 2018
